FAERS Safety Report 16299195 (Version 1)
Quarter: 2019Q2

REPORT INFORMATION
  Report Type: Spontaneous
  Country: US (occurrence: US)
  Receive Date: 20190510
  Receipt Date: 20190510
  Transmission Date: 20190711
  Serious: Yes (Hospitalization)
  Sender: FDA-Public Use
  Company Number: US-ALLERGAN-1919613US

PATIENT
  Sex: Female

DRUGS (1)
  1. KYBELLA [Suspect]
     Active Substance: DEOXYCHOLIC ACID
     Indication: PRODUCT USED FOR UNKNOWN INDICATION
     Dosage: UNK, SINGLE
     Route: 058

REACTIONS (8)
  - Swelling face [Unknown]
  - Haemorrhage [Unknown]
  - Musculoskeletal pain [Unknown]
  - Head discomfort [Unknown]
  - Visual impairment [Unknown]
  - Memory impairment [Unknown]
  - Balance disorder [Unknown]
  - Neck pain [Unknown]
